FAERS Safety Report 21698430 (Version 1)
Quarter: 2022Q4

REPORT INFORMATION
  Report Type: Report from Study
  Country: CN (occurrence: CN)
  Receive Date: 20221208
  Receipt Date: 20221208
  Transmission Date: 20230113
  Serious: Yes (Other)
  Sender: FDA-Public Use
  Company Number: CN-SUN PHARMACEUTICAL INDUSTRIES LTD-2022R1-367725

PATIENT
  Age: 6 Year

DRUGS (1)
  1. DILTIAZEM [Suspect]
     Active Substance: DILTIAZEM
     Indication: Heritable pulmonary arterial hypertension
     Dosage: 180 MILLIGRAM, DAILY (MAXIMUM)
     Route: 048

REACTIONS (3)
  - Atrial tachycardia [Unknown]
  - Sinus bradycardia [Unknown]
  - Hypotension [Unknown]
